FAERS Safety Report 15806119 (Version 1)
Quarter: 2019Q1

REPORT INFORMATION
  Report Type: Spontaneous
  Country: JP (occurrence: JP)
  Receive Date: 20190110
  Receipt Date: 20190110
  Transmission Date: 20190417
  Serious: Yes (Hospitalization, Other)
  Sender: FDA-Public Use
  Company Number: JP-BAUSCH-BL-2019-000336

PATIENT
  Age: 70 Year
  Sex: Male

DRUGS (6)
  1. PREDNISOLONE. [Suspect]
     Active Substance: PREDNISOLONE
     Dosage: DEVELOPED EPIGASTRIC PAIN ON DAY 5
     Route: 065
  2. DOCETAXEL. [Concomitant]
     Active Substance: DOCETAXEL
     Indication: LUNG ADENOCARCINOMA STAGE III
     Dosage: 2 CYCLICAL
     Dates: start: 201805
  3. NIVOLUMAB [Concomitant]
     Active Substance: NIVOLUMAB
     Indication: LUNG ADENOCARCINOMA STAGE III
  4. PREDNISOLONE. [Suspect]
     Active Substance: PREDNISOLONE
     Indication: INTERSTITIAL LUNG DISEASE
     Dosage: LONG-TERM PREDNISOLONE USE
     Route: 065
     Dates: start: 201801, end: 201805
  5. RAMUCIRUMAB [Interacting]
     Active Substance: RAMUCIRUMAB
     Indication: LUNG ADENOCARCINOMA STAGE III
     Dosage: 2 CYCLICAL
     Route: 065
     Dates: start: 201805
  6. NINTEDANIB [Interacting]
     Active Substance: NINTEDANIB
     Indication: IDIOPATHIC PULMONARY FIBROSIS
     Route: 065
     Dates: start: 201805

REACTIONS (2)
  - Drug interaction [Unknown]
  - Gastric perforation [Recovering/Resolving]

NARRATIVE: CASE EVENT DATE: 2018
